FAERS Safety Report 7332810-5 (Version None)
Quarter: 2011Q1

REPORT INFORMATION
  Report Type: 
  Country: None (occurrence: None)
  Receive Date: 20110304
  Receipt Date: 20110223
  Transmission Date: 20110831
  Serious: Yes (Death)
  Sender: FDA-Public Use
  Company Number: US-PFIZER INC-US-WYE-H02029408

PATIENT
  Age: 20 Year
  Sex: Male

DRUGS (7)
  1. PREGABALIN [Suspect]
     Dosage: UNK
     Dates: start: 20060101, end: 20060101
  2. DIPHENHYDRAMINE [Suspect]
     Dosage: UNK
     Dates: start: 20060101, end: 20060101
  3. CARISOPRODOL [Suspect]
     Dosage: UNK
     Dates: start: 20060101, end: 20060101
  4. HYDROCODONE [Suspect]
     Dosage: UNK
     Dates: start: 20060101, end: 20060101
  5. OXYCODONE [Suspect]
     Dosage: UNK
     Dates: start: 20060101, end: 20060101
  6. WARFARIN [Suspect]
     Dosage: UNK
  7. IBUPROFEN [Suspect]
     Dosage: UNK
     Dates: start: 20060101, end: 20060101

REACTIONS (5)
  - TOXICITY TO VARIOUS AGENTS [None]
  - DEATH [None]
  - CARDIAC ARREST [None]
  - RESPIRATORY ARREST [None]
  - OVERDOSE [None]
